FAERS Safety Report 7687185-9 (Version None)
Quarter: 2011Q3

REPORT INFORMATION
  Report Type: 
  Country: None (occurrence: None)
  Receive Date: 20110816
  Receipt Date: 20110810
  Transmission Date: 20111222
  Serious: Yes (Other)
  Sender: FDA-Public Use
  Company Number: CHPA2011DE10777

PATIENT
  Sex: Female

DRUGS (2)
  1. METOCLOPRAMIDE HYDROCHLORIDE [Suspect]
     Dosage: UNK DF, UNK
  2. SCOPOLAMINE [Suspect]
     Indication: MOTION SICKNESS
     Dosage: UNK DF, UNK
     Route: 062
     Dates: start: 20110727, end: 20110806

REACTIONS (9)
  - WEIGHT DECREASED [None]
  - BALANCE DISORDER [None]
  - VOMITING [None]
  - NAUSEA [None]
  - BLOOD PRESSURE INCREASED [None]
  - DECREASED APPETITE [None]
  - FATIGUE [None]
  - DIZZINESS [None]
  - HEADACHE [None]
